FAERS Safety Report 13549498 (Version 1)
Quarter: 2017Q2

REPORT INFORMATION
  Report Type: Spontaneous
  Country: IT (occurrence: None)
  Receive Date: 20170515
  Receipt Date: 20170515
  Transmission Date: 20170830
  Serious: Yes (Other)
  Sender: FDA-Public Use
  Company Number: IT2017K2977LIT

PATIENT

DRUGS (2)
  1. CEFTRIAXONE (CEFTRIAXONE) [Suspect]
     Active Substance: CEFTRIAXONE
     Indication: PNEUMONIA
  2. LANSOPRAZOLE GENERIC (LANSOPRAZOLE) UNKNOWN [Suspect]
     Active Substance: LANSOPRAZOLE
     Indication: ABDOMINAL PAIN UPPER

REACTIONS (2)
  - Drug interaction [None]
  - Long QT syndrome [None]
